FAERS Safety Report 8360610 (Version 8)
Quarter: 2013Q1

REPORT INFORMATION
  Report Type: Report from Study
  Country: US (occurrence: US)
  Receive Date: 20120128
  Receipt Date: 20130118
  Transmission Date: 20140127
  Serious: Yes (Other)
  Sender: FDA-Public Use
  Company Number: US-ABBOTT-11P-163-0845528-00

PATIENT
  Age: 77 Year
  Sex: Female

DRUGS (16)
  1. HUMIRA [Suspect]
     Dosage: DOSE FREQUENCY CANNOT BE CONFIRMED
     Dates: start: 20080314
  2. HUMIRA [Suspect]
  3. FLU SHOT [Suspect]
     Indication: PRODUCT USED FOR UNKNOWN INDICATION
     Dates: start: 201209, end: 201209
  4. DOXYCYCLINE [Suspect]
     Indication: PRODUCT USED FOR UNKNOWN INDICATION
     Dosage: 100MG DAILY
     Route: 048
     Dates: start: 20121113
  5. NEXIUM [Concomitant]
     Indication: GASTROOESOPHAGEAL REFLUX DISEASE
  6. METHOTREXATE [Concomitant]
     Indication: PRODUCT USED FOR UNKNOWN INDICATION
     Dosage: PILLS
     Dates: start: 1995
  7. ALBUTEROL [Concomitant]
     Indication: CHRONIC OBSTRUCTIVE PULMONARY DISEASE
     Dosage: NEBULIZER
  8. IPRATROPIUM [Concomitant]
     Indication: CHRONIC OBSTRUCTIVE PULMONARY DISEASE
     Dosage: NEBULIZER
  9. ADVAIR [Concomitant]
     Indication: PRODUCT USED FOR UNKNOWN INDICATION
     Dosage: 250/50; 1 PUFF IN AM AND PM
  10. FOLIC ACID [Concomitant]
     Indication: PRODUCT USED FOR UNKNOWN INDICATION
  11. VITAMIN B3 [Concomitant]
     Indication: BONE DISORDER
  12. METFORMIN [Concomitant]
     Indication: DIABETES MELLITUS
  13. PREDNISONE [Concomitant]
     Indication: PRODUCT USED FOR UNKNOWN INDICATION
  14. OXYGEN [Concomitant]
     Indication: PRODUCT USED FOR UNKNOWN INDICATION
     Dosage: AT NIGHT
  15. EYE DROPS (OTC) [Concomitant]
     Indication: PRODUCT USED FOR UNKNOWN INDICATION
  16. AZELASTINE [Concomitant]
     Dosage: 0.1% NASAL GTTS AT HS

REACTIONS (36)
  - Squamous cell carcinoma [Recovered/Resolved]
  - Squamous cell carcinoma [Recovered/Resolved]
  - Injection site pain [Unknown]
  - Device malfunction [Unknown]
  - Eye infection [Recovered/Resolved]
  - Eye pruritus [Recovered/Resolved]
  - Pain in jaw [Recovering/Resolving]
  - Wrong technique in drug usage process [Unknown]
  - Ocular hyperaemia [Recovered/Resolved]
  - Diabetes mellitus [Unknown]
  - Squamous cell carcinoma [Unknown]
  - Incorrect dose administered [Unknown]
  - Pain [Unknown]
  - Eye inflammation [Recovered/Resolved]
  - Dry eye [Unknown]
  - Eye irritation [Unknown]
  - Viral infection [Unknown]
  - Pain in jaw [Unknown]
  - Feeling abnormal [Unknown]
  - Pain [Unknown]
  - Erythema nodosum [Unknown]
  - Headache [Unknown]
  - Nausea [Unknown]
  - Idiopathic urticaria [Unknown]
  - Joint swelling [Not Recovered/Not Resolved]
  - Oedema [Not Recovered/Not Resolved]
  - Arthralgia [Not Recovered/Not Resolved]
  - Arthralgia [Not Recovered/Not Resolved]
  - Skin induration [Unknown]
  - Rash [Unknown]
  - Pain [Unknown]
  - Device malfunction [Unknown]
  - Erythema nodosum [Not Recovered/Not Resolved]
  - Skin discolouration [Unknown]
  - Oedema peripheral [Unknown]
  - Laceration [Unknown]
